FAERS Safety Report 15705511 (Version 1)
Quarter: 2018Q4

REPORT INFORMATION
  Report Type: Report from Study
  Country: None (occurrence: US)
  Receive Date: 20181210
  Receipt Date: 20181210
  Transmission Date: 20190205
  Serious: Yes (Life-Threatening)
  Sender: FDA-Public Use
  Company Number: US-CUMBERLAND PHARMACEUTICALS INC.-2059912

PATIENT
  Age: 21 Year
  Sex: Female

DRUGS (2)
  1. PROPOXYPHENE. [Concomitant]
     Active Substance: PROPOXYPHENE
  2. ACETADOTE [Suspect]
     Active Substance: ACETYLCYSTEINE
     Indication: ANALGESIC DRUG LEVEL INCREASED

REACTIONS (1)
  - Drug ineffective [Recovered/Resolved with Sequelae]
